FAERS Safety Report 6879963-0 (Version None)
Quarter: 2010Q3

REPORT INFORMATION
  Report Type: 
  Country: None (occurrence: None)
  Receive Date: 20100728
  Receipt Date: 20100720
  Transmission Date: 20110219
  Serious: Yes (Congenital Anomaly, Other)
  Sender: FDA-Public Use
  Company Number: NZ-TYCO HEALTHCARE/MALLINCKRODT-T201001687

PATIENT
  Age: 35 Week

DRUGS (1)
  1. METHADOSE [Suspect]
     Dosage: GREATER THAN 58 MG/DAY
     Route: 064

REACTIONS (3)
  - HEART DISEASE CONGENITAL [None]
  - PREMATURE BABY [None]
  - VOCAL CORD PARALYSIS [None]
